FAERS Safety Report 9782513 (Version 2)
Quarter: 2014Q1

REPORT INFORMATION
  Report Type: Report from Study
  Country: AU (occurrence: AU)
  Receive Date: 20131226
  Receipt Date: 20140114
  Transmission Date: 20141002
  Serious: Yes (Other)
  Sender: FDA-Public Use
  Company Number: PHHY2013AU150829

PATIENT
  Age: 63 Year
  Sex: Female

DRUGS (4)
  1. ACLASTA [Suspect]
     Dosage: 5 MG
     Route: 042
     Dates: start: 2010
  2. ACLASTA [Suspect]
     Dosage: 5 MG
     Route: 042
     Dates: start: 20111221
  3. ACLASTA [Suspect]
     Dosage: 5 MG
     Route: 042
     Dates: start: 20121214
  4. ACLASTA [Suspect]
     Dosage: 5 MG
     Route: 042
     Dates: start: 20131220

REACTIONS (9)
  - Jaw fracture [Recovered/Resolved]
  - Bone deformity [Unknown]
  - Fall [Recovered/Resolved]
  - Injury [Recovered/Resolved]
  - Tooth fracture [Recovered/Resolved]
  - Blood cholesterol increased [Unknown]
  - Haematocrit increased [Unknown]
  - Low density lipoprotein increased [Unknown]
  - C-reactive protein increased [Unknown]
